FAERS Safety Report 7098820-0 (Version None)
Quarter: 2010Q4

REPORT INFORMATION
  Report Type: 
  Country: None (occurrence: None)
  Receive Date: 20101112
  Receipt Date: 20101104
  Transmission Date: 20110411
  Serious: Yes (Death, Other)
  Sender: FDA-Public Use
  Company Number: JP-AMGEN-JPNCT2010004160

PATIENT

DRUGS (11)
  1. PANITUMUMAB [Suspect]
     Indication: COLORECTAL CANCER
     Dosage: 6 MG/KG, Q2WK
     Route: 041
     Dates: start: 20100818, end: 20100818
  2. IRINOTECAN HYDROCHLORIDE [Concomitant]
     Indication: COLORECTAL CANCER
     Route: 041
     Dates: start: 20100818, end: 20101006
  3. FLUOROURACIL [Concomitant]
     Indication: COLORECTAL CANCER
     Route: 040
     Dates: start: 20100818, end: 20101006
  4. FLUOROURACIL [Concomitant]
     Route: 041
     Dates: start: 20100818, end: 20101006
  5. CALCIUM LEVOFOLINATE [Concomitant]
     Indication: COLORECTAL CANCER
     Route: 041
     Dates: start: 20100818, end: 20101006
  6. ANTIHISTAMINES [Concomitant]
     Indication: PROPHYLAXIS
     Route: 065
  7. CORTICOSTEROIDS [Concomitant]
     Indication: PROPHYLAXIS
     Route: 065
  8. DECADRON PHOSPHATE [Concomitant]
     Route: 042
  9. GASTER [Concomitant]
     Route: 042
  10. ALOXI [Concomitant]
     Route: 042
  11. POLARAMINE [Concomitant]
     Route: 042

REACTIONS (3)
  - RASH PAPULAR [None]
  - RASH PUSTULAR [None]
  - VENTRICULAR ARRHYTHMIA [None]
